FAERS Safety Report 7366490-X (Version None)
Quarter: 2011Q1

REPORT INFORMATION
  Report Type: 
  Country: None (occurrence: None)
  Receive Date: 20110322
  Receipt Date: 20110307
  Transmission Date: 20110831
  Serious: Yes (Hospitalization)
  Sender: FDA-Public Use
  Company Number: US-BAYER-201037508NA

PATIENT
  Sex: Female
  Weight: 44.444 kg

DRUGS (6)
  1. YAZ [Suspect]
     Indication: ORAL CONTRACEPTION
     Dosage: UNK
     Route: 048
     Dates: start: 20061129, end: 20091224
  2. SYNTHROID [Concomitant]
     Indication: HYPOTHYROIDISM
     Dosage: UNK
     Dates: start: 19990101
  3. OCELLA [Suspect]
     Indication: PRODUCT USED FOR UNKNOWN INDICATION
     Route: 048
     Dates: start: 20061129
  4. YASMIN [Suspect]
     Indication: PRODUCT USED FOR UNKNOWN INDICATION
     Route: 048
     Dates: start: 20061129
  5. PRENATAL VITAMINS [Concomitant]
  6. ANTIEMETICS AND ANTINAUSEANTS [Concomitant]

REACTIONS (5)
  - CHOLECYSTITIS [None]
  - GALLBLADDER INJURY [None]
  - PAIN [None]
  - FEAR [None]
  - CHOLELITHIASIS [None]
